FAERS Safety Report 9293870 (Version 2)
Quarter: 2014Q1

REPORT INFORMATION
  Report Type: Spontaneous
  Country: US (occurrence: None)
  Receive Date: 20121217
  Receipt Date: 20131206
  Transmission Date: 20141002
  Serious: Yes (Hospitalization)
  Sender: FDA-Public Use
  Company Number: 1000038490

PATIENT
  Age: 86 Year
  Sex: Male
  Weight: 74.8 kg

DRUGS (8)
  1. NAMENDA [Suspect]
     Dosage: MANY YEARS AGO
  2. GALANTAMINE [Suspect]
  3. RAMIPRIL (RAMIPRIL) [Concomitant]
  4. ASPIRIN (ACETYLSALICYLIC ACID) [Concomitant]
  5. ALLEGRA (FEXOFENADINE HYDROCHLORIDE) [Concomitant]
  6. COUMADIN (WARFARIN) [Concomitant]
  7. CRESTOR (ROSUVASTATIN CALCIUM) [Concomitant]
  8. TAMSULOSIN (TAMSULOSIN) [Concomitant]

REACTIONS (2)
  - Cerebrovascular accident [None]
  - Hemiplegia [None]
